FAERS Safety Report 9725591 (Version 1)
Quarter: 2013Q4

REPORT INFORMATION
  Report Type: Spontaneous
  Country: US (occurrence: None)
  Receive Date: 20131202
  Receipt Date: 20131202
  Transmission Date: 20140711
  Serious: Yes (Disabling)
  Sender: FDA-Public Use
  Company Number: None

PATIENT
  Age: 44 Year
  Sex: Female
  Weight: 112.95 kg

DRUGS (1)
  1. TOPIRAMATE [Suspect]
     Indication: MIGRAINE
     Route: 048

REACTIONS (10)
  - Confusional state [None]
  - Nausea [None]
  - Fall [None]
  - Hypohidrosis [None]
  - Fatigue [None]
  - Memory impairment [None]
  - Visual impairment [None]
  - Seizure like phenomena [None]
  - Paraesthesia [None]
  - Impaired driving ability [None]
